FAERS Safety Report 6684292-4 (Version None)
Quarter: 2010Q2

REPORT INFORMATION
  Report Type: 
  Country: None (occurrence: None)
  Receive Date: 20100416
  Receipt Date: 20100331
  Transmission Date: 20101027
  Serious: Yes (Other)
  Sender: FDA-Public Use
  Company Number: PHHY2010NL20921

PATIENT
  Age: 55 Year
  Sex: Male

DRUGS (5)
  1. NEORAL [Suspect]
  2. PREDNISOLON [Concomitant]
  3. PROGRAFT [Concomitant]
  4. LIPITOR [Concomitant]
     Dosage: UNK
  5. SELOKEEN [Concomitant]

REACTIONS (4)
  - ANXIETY [None]
  - FEAR [None]
  - LOSS OF CONSCIOUSNESS [None]
  - MENTAL DISORDER [None]
